FAERS Safety Report 13916621 (Version 1)
Quarter: 2017Q3

REPORT INFORMATION
  Report Type: Spontaneous
  Country: US (occurrence: US)
  Receive Date: 20170829
  Receipt Date: 20170829
  Transmission Date: 20171127
  Serious: Yes (Other)
  Sender: FDA-Public Use
  Company Number: US-JNJFOC-20170819812

PATIENT

DRUGS (2)
  1. RITUXIMAB. [Suspect]
     Active Substance: RITUXIMAB
     Indication: MANTLE CELL LYMPHOMA
     Dosage: STOPPED ON UNSPECIFIED DATES BETWEEN 2011 AND 2017. FOR RELAPSED/REFRACTORY MCL
     Route: 065
  2. IBRUTINIB [Suspect]
     Active Substance: IBRUTINIB
     Indication: MANTLE CELL LYMPHOMA
     Dosage: STOPPED ON UNSPECIFIED DATES BETWEEN 2011 AND 2017.  FOR RELAPSED/REFRACTORY MCL
     Route: 048

REACTIONS (15)
  - Haemorrhage [Unknown]
  - Diarrhoea [Unknown]
  - Atrial fibrillation [Unknown]
  - Sinusitis [Unknown]
  - Lung cancer metastatic [Unknown]
  - Colitis [Unknown]
  - Stomatitis [Unknown]
  - Motion sickness [Unknown]
  - Infection [Unknown]
  - Thrombocytopenia [Unknown]
  - Arthritis bacterial [Unknown]
  - Oesophageal cancer metastatic [Unknown]
  - Contusion [Unknown]
  - Pneumonia [Unknown]
  - Fungal infection [Unknown]
